FAERS Safety Report 8289319-4 (Version None)
Quarter: 2012Q2

REPORT INFORMATION
  Report Type: 
  Country: None (occurrence: None)
  Receive Date: 20120417
  Receipt Date: 20120413
  Transmission Date: 20120825
  Serious: Yes (Death, Other)
  Sender: FDA-Public Use
  Company Number: PHHY2012DE025455

PATIENT
  Sex: Male
  Weight: 79 kg

DRUGS (9)
  1. RASILEZ [Suspect]
     Indication: HYPERTENSION
     Dosage: 300 MG/DAY
     Route: 048
     Dates: start: 20081216
  2. EXFORGE HCT [Suspect]
     Dosage: 1 DF, PER DAY
     Route: 048
     Dates: start: 20090101
  3. PROCOROLAN [Concomitant]
     Dosage: 5 MG, DAILY
     Route: 048
     Dates: start: 20101125
  4. DIURETICS [Concomitant]
  5. LEVEMIR [Concomitant]
     Dosage: 24 IU, DAILY
     Dates: start: 20071201
  6. NITRATES [Concomitant]
     Indication: DIABETES MELLITUS
  7. LIPROLOG [Concomitant]
     Dosage: 14 IU, DAILY
     Route: 058
     Dates: start: 20071201
  8. TORSEMIDE [Concomitant]
     Dosage: 50 MG, DAILY
     Route: 048
     Dates: start: 20071201
  9. ALLOPURINOL [Concomitant]
     Dosage: 300 MG, DAILY
     Route: 048
     Dates: start: 20071201

REACTIONS (2)
  - BLOOD CREATININE INCREASED [None]
  - COLON CANCER METASTATIC [None]
